FAERS Safety Report 16755212 (Version 1)
Quarter: 2019Q3

REPORT INFORMATION
  Report Type: Other
  Country: JP (occurrence: JP)
  Receive Date: 20190829
  Receipt Date: 20190829
  Transmission Date: 20191005
  Serious: Yes (Other)
  Sender: FDA-Public Use
  Company Number: JP-VISTAPHARM, INC.-VER201908-000868

PATIENT
  Age: 64 Year
  Sex: Male

DRUGS (8)
  1. PREDNISOLONE. [Suspect]
     Active Substance: PREDNISOLONE
     Dosage: 100 MG (ON DAYS 1 TO 5 AS THE SECOND CHEMOTHERAPY REGIMEN)
  2. VINCRISTINE [Concomitant]
     Active Substance: VINCRISTINE
     Indication: ALTERED STATE OF CONSCIOUSNESS
     Dosage: 1.4 MG/ME2 ON DAY 1 (AS FIRST AND SECOND CHEMOTHERAPY REGIMEN)
  3. SODIUM BICARBONATE. [Concomitant]
     Active Substance: SODIUM BICARBONATE
  4. CYCLOPHOSPHAMIDE. [Concomitant]
     Active Substance: CYCLOPHOSPHAMIDE
     Indication: ALTERED STATE OF CONSCIOUSNESS
     Dosage: 750 MG/ME2 (AS FIRST AND SECOND CHEMOTHERAPY REGIMEN)
  5. DOXORUBICIN [Concomitant]
     Active Substance: DOXORUBICIN
     Indication: ALTERED STATE OF CONSCIOUSNESS
     Dosage: 50 MG/ME2 (AS FIRST AND SECOND CHEMOTHERAPY REGIMEN)
  6. RITUXIMAB. [Concomitant]
     Active Substance: RITUXIMAB
     Indication: ALTERED STATE OF CONSCIOUSNESS
     Dosage: 600 MG ON DAY 4 (AS FIRST CHEMOTHERAPY REGIMEN)
  7. RITUXIMAB. [Concomitant]
     Active Substance: RITUXIMAB
     Dosage: 400 MG (FROM THE TWENTY-THIRD DAY AFTER THE SECOND CHEMOTHERAPY REGIMEN)
  8. PREDNISOLONE. [Suspect]
     Active Substance: PREDNISOLONE
     Indication: DIFFUSE LARGE B-CELL LYMPHOMA
     Dosage: 100 MG (ON DAYS 1 TO 5 AS THE FIRST CHEMOTHERAPY REGIMEN)

REACTIONS (1)
  - Tumour lysis syndrome [Unknown]
